FAERS Safety Report 6555504-2 (Version None)
Quarter: 2010Q1

REPORT INFORMATION
  Report Type: 
  Country: None (occurrence: None)
  Receive Date: 20100128
  Receipt Date: 20100122
  Transmission Date: 20100710
  Serious: Yes (Hospitalization)
  Sender: FDA-Public Use
  Company Number: JP-SANOFI-AVENTIS-2010SA003891

PATIENT
  Age: 17 Year
  Sex: Male

DRUGS (1)
  1. ALLEGRA [Suspect]
     Route: 048
     Dates: start: 20070701, end: 20081001

REACTIONS (1)
  - CHOLESTASIS [None]
